FAERS Safety Report 8540455-4 (Version None)
Quarter: 2012Q3

REPORT INFORMATION
  Report Type: 
  Country: None (occurrence: None)
  Receive Date: 20120726
  Receipt Date: 20110719
  Transmission Date: 20120928
  Serious: No
  Sender: FDA-Public Use
  Company Number: US-ASTRAZENECA-2011SE42902

PATIENT
  Age: 51 Year
  Sex: Female
  Weight: 49.9 kg

DRUGS (8)
  1. SEROQUEL [Suspect]
     Indication: DEPRESSION
     Route: 048
     Dates: start: 20110101
  2. RESTORIL [Concomitant]
     Indication: INSOMNIA
  3. NEURONTIN [Concomitant]
     Indication: DEPRESSION
  4. MOBIC [Concomitant]
     Indication: ARTHRITIS
  5. DESARYL [Concomitant]
  6. FLEXERIL [Concomitant]
     Indication: BACK DISORDER
  7. CELEXA [Concomitant]
  8. SEROQUEL [Suspect]
     Indication: ANXIETY
     Route: 048
     Dates: start: 20110101

REACTIONS (2)
  - PAIN IN EXTREMITY [None]
  - OEDEMA PERIPHERAL [None]
